FAERS Safety Report 7811175-6 (Version None)
Quarter: 2011Q4

REPORT INFORMATION
  Report Type: 
  Country: None (occurrence: None)
  Receive Date: 20111013
  Receipt Date: 20111011
  Transmission Date: 20120403
  Serious: Yes (Death)
  Sender: FDA-Public Use
  Company Number: PHHY2011CA87560

PATIENT
  Sex: Female

DRUGS (10)
  1. CLOZARIL [Suspect]
     Indication: SCHIZOAFFECTIVE DISORDER
  2. SYNTHROID [Concomitant]
     Dosage: 175 UG, DAILY
  3. MELOXICAM [Concomitant]
     Dosage: 15 MG, DAILY
  4. CALCIUM CARBONATE [Concomitant]
     Dosage: 900 MG, TID
  5. DOCUSATE SODIUM [Concomitant]
     Dosage: 100 MG, BID
  6. CLOZARIL [Suspect]
     Indication: SCHIZOPHRENIA
     Dosage: 900 MG, DAILY
     Route: 048
     Dates: start: 19960314, end: 20110926
  7. RISPERDAL [Concomitant]
     Dosage: 3 MG, DAILY
  8. VITAMIN D [Concomitant]
     Dosage: 400 IU, BID
  9. SEROQUEL [Concomitant]
     Dosage: 400 MG, UNK
  10. DIVALPROEX SODIUM [Concomitant]
     Dosage: 750 MG, 250 MG QAM AND 500 MG QHS

REACTIONS (6)
  - CARDIO-RESPIRATORY ARREST [None]
  - VOMITING [None]
  - ASPIRATION BRONCHIAL [None]
  - GASTROINTESTINAL DISORDER [None]
  - ABDOMINAL PAIN [None]
  - RENAL FAILURE ACUTE [None]
